FAERS Safety Report 25841750 (Version 1)
Quarter: 2025Q3

REPORT INFORMATION
  Report Type: Spontaneous
  Country: EU (occurrence: EU)
  Receive Date: 20250924
  Receipt Date: 20250924
  Transmission Date: 20251020
  Serious: Yes (Congenital Anomaly)
  Sender: DR REDDYS
  Company Number: None

PATIENT
  Sex: Female
  Weight: 1.95 kg

DRUGS (6)
  1. SUMATRIPTAN [Suspect]
     Active Substance: SUMATRIPTAN
     Indication: Migraine
     Route: 064
     Dates: start: 202309, end: 202405
  2. ASPIRIN [Suspect]
     Active Substance: ASPIRIN
     Indication: Prophylaxis
     Route: 064
     Dates: start: 202309, end: 202405
  3. PROGESTERONE [Suspect]
     Active Substance: PROGESTERONE
     Indication: Prophylaxis of abortion
     Route: 064
     Dates: start: 202310, end: 202312
  4. HEPARIN [Concomitant]
     Active Substance: HEPARIN SODIUM
     Indication: Factor V Leiden mutation
     Route: 064
     Dates: start: 202309, end: 202405
  5. LEVOTHYROXINE SODIUM [Concomitant]
     Active Substance: LEVOTHYROXINE SODIUM
     Indication: Hypothyroidism
     Route: 064
     Dates: start: 202309, end: 202405
  6. PERTUSSIS VACCINE [Concomitant]
     Active Substance: PERTUSSIS VACCINE
     Indication: Immunisation
     Dosage: ~GW 30 (APPROXIMATELY 3 WEEKS BEFORE DELIVERY)
     Route: 064
     Dates: start: 202404, end: 202404

REACTIONS (2)
  - Cardiac septal defect [Unknown]
  - Foetal exposure during pregnancy [Unknown]
